FAERS Safety Report 7880622 (Version 5)
Quarter: 2013Q1

REPORT INFORMATION
  Report Type: Spontaneous
  Country: US (occurrence: US)
  Receive Date: 20110331
  Receipt Date: 20130107
  Transmission Date: 20140127
  Serious: Yes (Death, Other)
  Sender: FDA-Public Use
  Company Number: US-ASTRAZENECA-2011SE16544

PATIENT
  Age: 63 Year
  Sex: Male
  Weight: 87.3 kg

DRUGS (3)
  1. NEXIUM [Suspect]
     Indication: GASTROOESOPHAGEAL REFLUX DISEASE
     Route: 048
     Dates: start: 2004
  2. PRILOSEC [Suspect]
     Route: 048
  3. PROTONIX [Concomitant]

REACTIONS (6)
  - Bile duct cancer [Fatal]
  - Gastrointestinal haemorrhage [Fatal]
  - Radiation hepatitis [Unknown]
  - Hepatic cirrhosis [Unknown]
  - Feeling abnormal [Unknown]
  - Drug dose omission [Unknown]
